FAERS Safety Report 4372299-1 (Version None)
Quarter: 2004Q2

REPORT INFORMATION
  Report Type: 
  Country: None (occurrence: None)
  Receive Date: 20040602
  Receipt Date: 20040525
  Transmission Date: 20050107
  Serious: Yes (Death, Hospitalization)
  Sender: FDA-Public Use
  Company Number: 2004SE02965

PATIENT
  Age: 71 Year
  Sex: Male

DRUGS (22)
  1. DIPRIVAN [Suspect]
     Indication: ANAESTHESIA
     Dosage: 444 MG ONCE IV
     Route: 042
     Dates: start: 20031117, end: 20031117
  2. ACTRAPID [Concomitant]
  3. FENTANYL FRESENIUS KABI [Concomitant]
  4. XYLOCAIN  /SCH/ [Concomitant]
  5. SOLU-CORTEF [Concomitant]
  6. ACETAMINOPHEN [Concomitant]
  7. PRIMPERAN INJ [Concomitant]
  8. IMPUGAN [Concomitant]
  9. ADRENALIN NM PHARMA [Concomitant]
  10. ZINACEF       /SCH/ [Concomitant]
  11. STESOLID NOVUM [Concomitant]
  12. PROMITEN [Concomitant]
  13. ZANTAC [Concomitant]
  14. VENTOLIN [Concomitant]
  15. ALFENTANIL [Concomitant]
  16. LANEXAT [Concomitant]
  17. KLEXANE [Concomitant]
  18. DORMICUM [Concomitant]
  19. LOSEC [Concomitant]
  20. KETOGAN NOVUM [Concomitant]
  21. ESMERON [Concomitant]
  22. PRO-EPANUTIN [Concomitant]

REACTIONS (17)
  - ARTERIOSCLEROSIS [None]
  - BLOOD PRESSURE DECREASED [None]
  - BRAIN OEDEMA [None]
  - CARDIAC ARREST [None]
  - CEREBRAL ARTERY EMBOLISM [None]
  - CEREBROVASCULAR DISORDER [None]
  - DELAYED RECOVERY FROM ANAESTHESIA [None]
  - ENCEPHALOPATHY [None]
  - EPILEPSY [None]
  - HYPOXIA [None]
  - LACUNAR INFARCTION [None]
  - LOSS OF CONSCIOUSNESS [None]
  - RECTAL CANCER METASTATIC [None]
  - RECURRENT CANCER [None]
  - RESPIRATORY RATE DECREASED [None]
  - SOMNOLENCE [None]
  - VENTRICULAR TACHYCARDIA [None]
